FAERS Safety Report 15182699 (Version 2)
Quarter: 2018Q3

REPORT INFORMATION
  Report Type: Spontaneous
  Country: US (occurrence: US)
  Receive Date: 20180723
  Receipt Date: 20180808
  Transmission Date: 20181010
  Serious: No
  Sender: FDA-Public Use
  Company Number: US-TEVA-2018-US-928916

PATIENT
  Sex: Male

DRUGS (1)
  1. FENTANYL ACTAVIS [Suspect]
     Active Substance: FENTANYL
     Indication: ANALGESIC THERAPY
     Dosage: 100MCG 5
     Route: 062

REACTIONS (1)
  - Drug effect incomplete [Unknown]
